FAERS Safety Report 8259012-2 (Version None)
Quarter: 2012Q2

REPORT INFORMATION
  Report Type: 
  Country: None (occurrence: None)
  Receive Date: 20120404
  Receipt Date: 20120323
  Transmission Date: 20120825
  Serious: Yes (Hospitalization)
  Sender: FDA-Public Use
  Company Number: FR-SP-2012-02566

PATIENT
  Sex: Male
  Weight: 69 kg

DRUGS (1)
  1. IMMUCYST [Suspect]
     Indication: BLADDER CANCER
     Route: 065

REACTIONS (8)
  - CHOROID TUBERCLES [None]
  - HEPATITIS [None]
  - ARTHROPATHY [None]
  - PYREXIA [None]
  - ASTHENIA [None]
  - PULMONARY TUBERCULOSIS [None]
  - BOVINE TUBERCULOSIS [None]
  - DYSPNOEA [None]
